FAERS Safety Report 4542303-6 (Version None)
Quarter: 2004Q4

REPORT INFORMATION
  Report Type: 
  Country: None (occurrence: None)
  Receive Date: 20041227
  Receipt Date: 20041217
  Transmission Date: 20050328
  Serious: Yes (Hospitalization, Other)
  Sender: FDA-Public Use
  Company Number: KII-2004-0014306

PATIENT
  Age: 59 Year
  Sex: Male

DRUGS (3)
  1. OXYCODONE HCL [Suspect]
     Dosage: ORAL
     Route: 048
  2. BENZODIAZEPINE DERIVATIVES [Suspect]
     Dosage: ORAL
     Route: 048
  3. ANTIPSYCHOTICS [Suspect]
     Dosage: ORAL
     Route: 048

REACTIONS (27)
  - AGITATION [None]
  - ANOXIC ENCEPHALOPATHY [None]
  - ANXIETY [None]
  - ASTHENIA [None]
  - BLOOD MAGNESIUM DECREASED [None]
  - BLOOD PHOSPHORUS DECREASED [None]
  - BLOOD POTASSIUM DECREASED [None]
  - BLOOD PRESSURE INCREASED [None]
  - BODY TEMPERATURE DECREASED [None]
  - BODY TEMPERATURE INCREASED [None]
  - COMA [None]
  - CONFUSIONAL STATE [None]
  - DEEP VEIN THROMBOSIS [None]
  - DRUG SCREEN POSITIVE [None]
  - EYE MOVEMENT DISORDER [None]
  - HEART RATE DECREASED [None]
  - HEART RATE INCREASED [None]
  - HYPOTENSION [None]
  - INFUSION RELATED REACTION [None]
  - MIOSIS [None]
  - MULTIPLE DRUG OVERDOSE [None]
  - NEUROLOGICAL EXAMINATION ABNORMAL [None]
  - NYSTAGMUS [None]
  - OXYGEN SATURATION DECREASED [None]
  - PUPILS UNEQUAL [None]
  - RESTLESSNESS [None]
  - SOMNOLENCE [None]
